FAERS Safety Report 9302152 (Version 3)
Quarter: 2013Q4

REPORT INFORMATION
  Report Type: Spontaneous
  Country: US (occurrence: US)
  Receive Date: 20130522
  Receipt Date: 20131216
  Transmission Date: 20140711
  Serious: Yes (Hospitalization)
  Sender: FDA-Public Use
  Company Number: US-B.I. PHARMACEUTICALS,INC./RIDGEFIELD-2013-BI-14238BP

PATIENT
  Sex: Male
  Weight: 72.57 kg

DRUGS (12)
  1. PRADAXA [Suspect]
     Indication: ATRIAL FIBRILLATION
     Dosage: 150 MG
     Route: 048
     Dates: start: 20110327, end: 201105
  2. ASPIRIN [Suspect]
     Dates: end: 20110516
  3. PLAVIX [Concomitant]
  4. LIPITOR [Concomitant]
     Dosage: 10 MG
  5. ASACOL [Concomitant]
     Dosage: 1200 MG
  6. DIGOXIN [Concomitant]
     Dosage: 0.0625 MG
  7. ALLOPURINOL [Concomitant]
     Dosage: 300 MG
  8. KLOR-CON [Concomitant]
     Dosage: 20 MEQ
  9. OMEPRAZOLE [Concomitant]
     Dosage: 40 MG
  10. COREG [Concomitant]
     Dosage: 50 MG
  11. FAMOTIDINE [Concomitant]
     Dosage: 40 MG
  12. IRON [Concomitant]

REACTIONS (3)
  - Gastrointestinal haemorrhage [Unknown]
  - Large intestinal ulcer [Unknown]
  - Anaemia [Unknown]
